FAERS Safety Report 10166274 (Version 1)
Quarter: 2014Q2

REPORT INFORMATION
  Report Type: Spontaneous
  Country: BR (occurrence: BR)
  Receive Date: 20140512
  Receipt Date: 20140512
  Transmission Date: 20141212
  Serious: Yes (Other)
  Sender: FDA-Public Use
  Company Number: BR-JNJFOC-20140500419

PATIENT
  Age: 47 Year
  Sex: Female

DRUGS (1)
  1. LEVAQUIN [Suspect]
     Indication: SINUSITIS
     Route: 065

REACTIONS (9)
  - Juvenile idiopathic arthritis [Unknown]
  - Insomnia [Unknown]
  - Agitation [Unknown]
  - Asthenia [Unknown]
  - Dizziness [Unknown]
  - Fatigue [Unknown]
  - Abnormal dreams [Unknown]
  - Gastrointestinal disorder [Unknown]
  - Mental disorder [Unknown]
